FAERS Safety Report 14757451 (Version 1)
Quarter: 2018Q2

REPORT INFORMATION
  Report Type: Spontaneous
  Country: PL (occurrence: PL)
  Receive Date: 20180413
  Receipt Date: 20180413
  Transmission Date: 20180711
  Serious: Yes (Other)
  Sender: FDA-Public Use
  Company Number: PL-TEVA-2018-PL-881757

PATIENT
  Age: 34 Year
  Sex: Female

DRUGS (1)
  1. SUMAMED 500 MG [Suspect]
     Active Substance: AZITHROMYCIN
     Route: 048

REACTIONS (8)
  - Diarrhoea [Unknown]
  - Helplessness [Unknown]
  - Palpitations [Unknown]
  - Abdominal pain [Unknown]
  - Decreased appetite [Unknown]
  - Speech disorder [Unknown]
  - Vision blurred [Unknown]
  - Asthenia [Unknown]
